FAERS Safety Report 6528528-9 (Version None)
Quarter: 2010Q1

REPORT INFORMATION
  Report Type: 
  Country: None (occurrence: None)
  Receive Date: 20100106
  Receipt Date: 20091231
  Transmission Date: 20100710
  Serious: Yes (Other)
  Sender: FDA-Public Use
  Company Number: CA-JNJFOC-20091202425

PATIENT
  Sex: Female

DRUGS (11)
  1. STELARA [Suspect]
     Route: 058
     Dates: start: 20091121
  2. STELARA [Suspect]
     Indication: PSORIASIS
     Route: 058
     Dates: start: 20091121
  3. ADVAIR DISKUS 100/50 [Concomitant]
     Indication: ASTHMA
  4. SYNTHROID [Concomitant]
     Indication: THYROID DISORDER
  5. LIPITOR [Concomitant]
     Indication: BLOOD CHOLESTEROL INCREASED
  6. ASPIRIN [Concomitant]
     Indication: ANTICOAGULANT THERAPY
  7. COVERSYL [Concomitant]
     Indication: HYPERTENSION
     Route: 048
  8. INSULIN NOVORAPID [Concomitant]
  9. NPH INSULIN [Concomitant]
  10. ASAPHEN [Concomitant]
  11. INHALERS [Concomitant]

REACTIONS (7)
  - ASTHMA [None]
  - DYSPHAGIA [None]
  - HYPERSENSITIVITY [None]
  - OEDEMA PERIPHERAL [None]
  - PRURITUS [None]
  - RASH [None]
  - SWELLING [None]
